FAERS Safety Report 23925460 (Version 1)
Quarter: 2024Q2

REPORT INFORMATION
  Report Type: Spontaneous
  Country: US (occurrence: US)
  Receive Date: 20240531
  Receipt Date: 20240531
  Transmission Date: 20240716
  Serious: No
  Sender: FDA-Public Use
  Company Number: US-SANOFI-02061980

PATIENT
  Age: 69 Year
  Sex: Male
  Weight: 64.4 kg

DRUGS (1)
  1. FABRAZYME [Suspect]
     Active Substance: AGALSIDASE BETA
     Indication: Fabry^s disease
     Dosage: 10MG/ KG Q10D TOTAL AMOUNT OF DRUG DELIVERED: 70 MG
     Route: 065

REACTIONS (1)
  - Off label use [Unknown]
